FAERS Safety Report 6807289-X (Version None)
Quarter: 2010Q2

REPORT INFORMATION
  Report Type: 
  Country: None (occurrence: None)
  Receive Date: 20100629
  Receipt Date: 20090115
  Transmission Date: 20101027
  Serious: No
  Sender: FDA-Public Use
  Company Number: US-PFIZER INC-2008061482

PATIENT
  Sex: Female
  Weight: 99.4 kg

DRUGS (13)
  1. TIKOSYN [Suspect]
     Indication: ATRIAL FLUTTER
     Dosage: 0.125 MG, 2X/DAY
     Dates: start: 20080527
  2. FOSAMAX [Concomitant]
     Dosage: UNK
  3. NEXIUM [Concomitant]
     Dosage: UNK
  4. CELEBREX [Concomitant]
     Dosage: UNK
  5. WARFARIN SODIUM [Concomitant]
     Dosage: UNK
  6. PREMARIN [Concomitant]
     Dosage: UNK
  7. MULTI-VITAMINS [Concomitant]
     Dosage: UNK
  8. VITAMIN D [Concomitant]
     Dosage: UNK
  9. CALCIUM CARBONATE [Concomitant]
     Dosage: UNK
  10. METOPROLOL TARTRATE [Concomitant]
     Dosage: UNK
  11. SPIRONOLACTONE [Concomitant]
     Dosage: UNK
  12. DEMADEX [Concomitant]
     Dosage: UNK
  13. MECLIZINE [Concomitant]
     Dosage: UNK

REACTIONS (2)
  - OROPHARYNGEAL PAIN [None]
  - SINUSITIS [None]
